FAERS Safety Report 14470437 (Version 3)
Quarter: 2019Q2

REPORT INFORMATION
  Report Type: Spontaneous
  Country: US (occurrence: US)
  Receive Date: 20180131
  Receipt Date: 20190621
  Transmission Date: 20190711
  Serious: Yes (Other)
  Sender: FDA-Public Use
  Company Number: US-INDIVIOR LIMITED-INDV-108128-2018

PATIENT
  Age: 37 Year
  Sex: Female

DRUGS (2)
  1. SUBUTEX [Suspect]
     Active Substance: BUPRENORPHINE HYDROCHLORIDE
     Indication: DRUG DEPENDENCE
  2. SUBUTEX [Suspect]
     Active Substance: BUPRENORPHINE HYDROCHLORIDE
     Indication: PAIN MANAGEMENT
     Dosage: 8 MG, DAILY
     Route: 048

REACTIONS (8)
  - Foetal distress syndrome [Unknown]
  - Premature separation of placenta [Unknown]
  - Genital herpes [Unknown]
  - Maternal exposure during pregnancy [Recovered/Resolved]
  - Product use issue [Unknown]
  - Procedural pain [Unknown]
  - Vaginal haemorrhage [Unknown]
  - Breakthrough pain [Unknown]
